FAERS Safety Report 7789745-3 (Version None)
Quarter: 2011Q3

REPORT INFORMATION
  Report Type: 
  Country: None (occurrence: None)
  Receive Date: 20110930
  Receipt Date: 20100823
  Transmission Date: 20111222
  Serious: No
  Sender: FDA-Public Use
  Company Number: US-ASTRAZENECA-2009SE21279

PATIENT
  Age: 77 Year
  Sex: Female

DRUGS (5)
  1. SHOTS FOR ALLERGIES [Concomitant]
  2. VASOTEC [Concomitant]
  3. IBUPROFEN (ADVIL) [Concomitant]
  4. ARIMIDEX [Suspect]
     Indication: BREAST CANCER
     Route: 048
     Dates: start: 20090601, end: 20090925
  5. ZYRTEC [Concomitant]

REACTIONS (6)
  - NAUSEA [None]
  - HOT FLUSH [None]
  - PAIN [None]
  - AMNESIA [None]
  - ALOPECIA [None]
  - INSOMNIA [None]
